FAERS Safety Report 23643252 (Version 4)
Quarter: 2024Q2

REPORT INFORMATION
  Report Type: Spontaneous
  Country: IT (occurrence: IT)
  Receive Date: 20240318
  Receipt Date: 20240402
  Transmission Date: 20240716
  Serious: Yes (Other)
  Sender: FDA-Public Use
  Company Number: None

PATIENT
  Age: 48 Year
  Sex: Female

DRUGS (2)
  1. RILPIVIRINE [Suspect]
     Active Substance: RILPIVIRINE
     Indication: HIV infection
     Dosage: 1 DF (1 VIAL CYCLIC ADMINISTRATION THIRD ADMINISTRATION)
     Route: 030
     Dates: start: 20230608, end: 20230608
  2. VOCABRIA [Suspect]
     Active Substance: CABOTEGRAVIR SODIUM
     Indication: HIV infection
     Dosage: 1 DF (1 VIAL CYCLIC ADMINISTRATION THIRD ADMINISTRATION)
     Route: 030
     Dates: start: 20230608, end: 20230608

REACTIONS (2)
  - Hepatitis B [Recovered/Resolved]
  - Hepatitis viral [Recovered/Resolved]

NARRATIVE: CASE EVENT DATE: 20230620
